FAERS Safety Report 11330278 (Version 1)
Quarter: 2015Q3

REPORT INFORMATION
  Report Type: Spontaneous
  Country: US (occurrence: US)
  Receive Date: 20150803
  Receipt Date: 20150803
  Transmission Date: 20151125
  Serious: Yes (Hospitalization, Other)
  Sender: FDA-Public Use
  Company Number: US-PFIZER INC-2015253149

PATIENT
  Age: 82 Year
  Sex: Male
  Weight: 66 kg

DRUGS (4)
  1. BOSULIF [Suspect]
     Active Substance: BOSUTINIB MONOHYDRATE
     Indication: CHRONIC MYELOID LEUKAEMIA
     Dosage: 300 MG, DAILY
     Route: 048
  2. CALCIUM CHLORIDE. [Concomitant]
     Active Substance: CALCIUM CHLORIDE
     Dosage: 100 MG, UNK
  3. BACITRACIN/NEOMYCIN/POLYMYXIN B [Concomitant]
     Indication: EYE INFECTION
     Dosage: UNK, 4X/DAY
  4. NORCO [Concomitant]
     Active Substance: ACETAMINOPHEN\HYDROCODONE BITARTRATE
     Dosage: 1-2 TABLETS EVERY 4 HOURS, AS NEEDED (325 MG)

REACTIONS (5)
  - Eye haemorrhage [Unknown]
  - Platelet count increased [Unknown]
  - Disease progression [Unknown]
  - Eye disorder [Unknown]
  - Chronic myeloid leukaemia [Unknown]

NARRATIVE: CASE EVENT DATE: 201507
